FAERS Safety Report 17522939 (Version 1)
Quarter: 2020Q1

REPORT INFORMATION
  Report Type: Spontaneous
  Country: US (occurrence: US)
  Receive Date: 20200310
  Receipt Date: 20200310
  Transmission Date: 20200409
  Serious: No
  Sender: FDA-Public Use
  Company Number: US-GALDERMA-US19058655

PATIENT
  Age: 25 Year
  Sex: Female

DRUGS (8)
  1. PROACTIV ADVANCED DARK SPOT CORRECTING SERUM [Concomitant]
     Active Substance: HYDROQUINONE
     Indication: SKIN HYPERPIGMENTATION
  2. PROACTIV MARK CORRECTING PADS [Concomitant]
     Active Substance: GLYCOLIC ACID\SALICYLIC ACID
     Indication: ACNE
     Route: 061
     Dates: start: 20190604
  3. PROACTIV SKIN PURIFYING MASK [Concomitant]
     Active Substance: SULFUR
     Indication: ACNE
     Route: 061
     Dates: start: 20190604
  4. PROACTIV MD ADAPALENE ACNE TREATMENT [Suspect]
     Active Substance: ADAPALENE
     Indication: ACNE
     Dosage: 0.1%
     Route: 061
     Dates: start: 20190604
  5. PROACTIV MD ADAPALENE ACNE TREATMENT [Suspect]
     Active Substance: ADAPALENE
     Indication: SKIN HYPERPIGMENTATION
  6. PROACTIV ADVANCED DARK SPOT CORRECTING SERUM [Concomitant]
     Active Substance: HYDROQUINONE
     Indication: ACNE
     Route: 061
     Dates: start: 20190604
  7. PROACTIV MARK CORRECTING PADS [Concomitant]
     Active Substance: GLYCOLIC ACID\SALICYLIC ACID
     Indication: SKIN HYPERPIGMENTATION
  8. PROACTIV SKIN PURIFYING MASK [Concomitant]
     Active Substance: SULFUR
     Indication: SKIN HYPERPIGMENTATION

REACTIONS (1)
  - Dry skin [Recovered/Resolved]
